FAERS Safety Report 8966533 (Version 1)
Quarter: 2012Q4

REPORT INFORMATION
  Report Type: 
  Country: JP (occurrence: JP)
  Receive Date: 20121217
  Receipt Date: 20121217
  Transmission Date: 20130627
  Serious: Yes (Hospitalization)
  Sender: FDA-Public Use
  Company Number: JP-EISAI INC-E2090-02444-SPO-JP

PATIENT
  Age: 48 Year
  Sex: Male

DRUGS (1)
  1. EXCEGRAN [Suspect]
     Indication: DRUG USE FOR UNKNOWN INDICATION
     Dosage: Unknown
     Route: 048

REACTIONS (1)
  - Toxic epidermal necrolysis [Unknown]
